FAERS Safety Report 7087951-7 (Version None)
Quarter: 2010Q4

REPORT INFORMATION
  Report Type: 
  Country: None (occurrence: None)
  Receive Date: 20101108
  Receipt Date: 20101026
  Transmission Date: 20110411
  Serious: Yes (Other)
  Sender: FDA-Public Use
  Company Number: US-US-EMD SERONO, INC.-236221K09USA

PATIENT
  Sex: Female

DRUGS (3)
  1. REBIF [Suspect]
     Indication: MULTIPLE SCLEROSIS
     Route: 058
     Dates: start: 20061122, end: 20091216
  2. SYNTHROID [Concomitant]
     Route: 065
  3. UNSPECIFIED MEDICATIONS [Concomitant]
     Indication: CARDIAC DISORDER

REACTIONS (6)
  - ANAEMIA OF CHRONIC DISEASE [None]
  - BLOOD CHLORIDE ABNORMAL [None]
  - LYMPHOCYTE COUNT DECREASED [None]
  - NEUTROPHIL COUNT INCREASED [None]
  - PSORIASIS [None]
  - THYROID FUNCTION TEST ABNORMAL [None]
